FAERS Safety Report 9280404 (Version 1)
Quarter: 2013Q2

REPORT INFORMATION
  Report Type: Spontaneous
  Country: NP (occurrence: NP)
  Receive Date: 20130509
  Receipt Date: 20130509
  Transmission Date: 20140414
  Serious: Yes (Other)
  Sender: FDA-Public Use
  Company Number: NP-JNJFOC-20130500629

PATIENT
  Age: 53 Year
  Sex: Male

DRUGS (6)
  1. DOXORUBICIN [Suspect]
     Indication: PLASMA CELL MYELOMA
     Dosage: IN 5% DEXTROSE INFUSION IN 24 HOURS??(DAY 1?4)
     Route: 042
  2. DOXORUBICIN [Suspect]
     Indication: PLASMA CELL MYELOMA
     Dosage: IN 5% DEXTROSE INFUSION IN 24 HOURS??(DAY 1?4)
     Route: 042
  3. BORTEZOMIB [Suspect]
     Indication: PLASMA CELL MYELOMA
     Dosage: BOLUS (DAY 1,4,8,11)
     Route: 042
  4. BORTEZOMIB [Suspect]
     Indication: PLASMA CELL MYELOMA
     Dosage: BOLUS (DAY 1,4,8,11)
     Route: 042
  5. DEXAMETHASONE [Suspect]
     Indication: PLASMA CELL MYELOMA
     Dosage: 40 MG DAY 1 AND 20 MG DAY 2-4 OF 21 DAYS CYCLE
     Route: 065
  6. DEXAMETHASONE [Suspect]
     Indication: PLASMA CELL MYELOMA
     Dosage: 40 MG DAY 1 AND 20 MG DAY 2-4 OF 21 DAYS CYCLE
     Route: 065

REACTIONS (3)
  - Lower respiratory tract infection [Unknown]
  - Thrombocytopenia [Unknown]
  - Neutropenia [Unknown]
